FAERS Safety Report 5794260-2 (Version None)
Quarter: 2008Q2

REPORT INFORMATION
  Report Type: 
  Country: None (occurrence: None)
  Receive Date: 20080627
  Receipt Date: 20080618
  Transmission Date: 20081010
  Serious: Yes (Hospitalization)
  Sender: FDA-Public Use
  Company Number: JP-PFIZER INC-2008051674

PATIENT
  Age: 67 Year
  Sex: Female

DRUGS (3)
  1. SOLANAX [Suspect]
     Indication: DEPRESSION
     Dosage: TEXT:TDD:1.2 MG
  2. SOLANAX [Suspect]
     Indication: PANIC DISORDER
  3. BROTIZOLAM [Concomitant]

REACTIONS (3)
  - ABNORMAL BEHAVIOUR [None]
  - DRUG DEPENDENCE [None]
  - SUICIDAL IDEATION [None]
